FAERS Safety Report 22133338 (Version 1)
Quarter: 2023Q1

REPORT INFORMATION
  Report Type: Spontaneous
  Country: US (occurrence: US)
  Receive Date: 20230324
  Receipt Date: 20230324
  Transmission Date: 20230418
  Serious: Yes (Life-Threatening, Hospitalization, Other)
  Sender: FDA-Public Use
  Company Number: US-LUPIN PHARMACEUTICALS INC.-2023-02216

PATIENT
  Age: 75 Year
  Sex: Female

DRUGS (2)
  1. DULOXETINE [Interacting]
     Active Substance: DULOXETINE
     Indication: Product used for unknown indication
     Dosage: UNK
     Route: 065
  2. FLECAINIDE [Interacting]
     Active Substance: FLECAINIDE
     Indication: Atrial fibrillation
     Dosage: 150 MILLIGRAM, QD (DAILY FOR 4 YEARS)
     Route: 065

REACTIONS (3)
  - Ventricular tachycardia [Recovered/Resolved]
  - Toxicity to various agents [Recovered/Resolved]
  - Drug interaction [Unknown]
